FAERS Safety Report 5713260-1 (Version None)
Quarter: 2008Q2

REPORT INFORMATION
  Report Type: 
  Country: None (occurrence: None)
  Receive Date: 20080422
  Receipt Date: 20080410
  Transmission Date: 20081010
  Serious: Yes (Death, Other)
  Sender: FDA-Public Use
  Company Number: BR-PFIZER INC-2008032993

PATIENT
  Sex: Female
  Weight: 38 kg

DRUGS (6)
  1. GEODON [Suspect]
     Indication: MENTAL DISORDER
     Route: 048
  2. ALL OTHER THERAPEUTIC PRODUCTS [Concomitant]
  3. LISADOR [Concomitant]
  4. ZESTRIL [Concomitant]
  5. DEXAMETHASONE TAB [Concomitant]
  6. AROMASIN [Concomitant]

REACTIONS (2)
  - BREAST CANCER [None]
  - METASTASIS [None]
